FAERS Safety Report 8293517-3 (Version None)
Quarter: 2012Q2

REPORT INFORMATION
  Report Type: 
  Country: None (occurrence: None)
  Receive Date: 20120418
  Receipt Date: 20120412
  Transmission Date: 20120825
  Serious: Yes (Hospitalization)
  Sender: FDA-Public Use
  Company Number: DK-AMGEN-DNKSP2011053655

PATIENT
  Age: 64 Year
  Sex: Male
  Weight: 81 kg

DRUGS (26)
  1. PREDNISONE TAB [Suspect]
     Dosage: 100 MG, UNK
     Route: 048
     Dates: start: 20110628, end: 20110702
  2. CYCLOPHOSPHAMIDE [Suspect]
     Indication: DIFFUSE LARGE B-CELL LYMPHOMA
     Dosage: 1500 MG, QD
     Route: 042
     Dates: start: 20110426
  3. CYCLOPHOSPHAMIDE [Suspect]
     Dosage: 1500 MG, UNK
     Route: 042
     Dates: start: 20110628
  4. RITUXIMAB [Suspect]
     Indication: DIFFUSE LARGE B-CELL LYMPHOMA
     Dosage: 750 MG, QD
     Route: 042
     Dates: start: 20110426
  5. MORPHINE [Concomitant]
     Indication: PAIN
     Dosage: 10 MG, BID
     Route: 048
     Dates: start: 20110401
  6. FUROSEMIDE [Concomitant]
     Indication: POLYURIA
     Dosage: 40 MG, UNK
     Route: 048
     Dates: start: 20110101
  7. NEUPOGEN [Suspect]
     Dosage: 6 MG, UNK
     Route: 058
     Dates: start: 20110629
  8. DOXORUBICIN HCL [Suspect]
     Indication: DIFFUSE LARGE B-CELL LYMPHOMA
     Dosage: 100 MG, QD
     Route: 042
     Dates: start: 20110426
  9. VINCRISTINE [Suspect]
     Indication: DIFFUSE LARGE B-CELL LYMPHOMA
     Dosage: 2 MG, QD
     Route: 042
     Dates: start: 20110426
  10. SENNOSIDES A+B [Concomitant]
  11. VINCRISTINE [Suspect]
     Dosage: 2 MG, UNK
     Route: 042
     Dates: start: 20110628
  12. ALLOPURINOL [Concomitant]
     Indication: PROPHYLAXIS
     Dosage: UNK
     Route: 048
     Dates: start: 20110412, end: 20110708
  13. MOVICOL-HALF [Concomitant]
     Indication: CONSTIPATION
     Dosage: UNK
     Dates: start: 20110101
  14. LANSOPRAZOLE [Concomitant]
     Indication: PROPHYLAXIS
     Dosage: 30 MG, UNK
     Route: 048
     Dates: start: 20110101
  15. AMLODIPINE [Concomitant]
     Indication: HYPERTENSION
     Dosage: UNK
     Route: 048
     Dates: start: 20110415
  16. ACYCLOVIR [Concomitant]
     Indication: PROPHYLAXIS
     Dosage: 400 MG, UNK
     Route: 048
     Dates: start: 20110412
  17. RITUXIMAB [Suspect]
     Dosage: 750 MG, UNK
     Route: 042
     Dates: start: 20110628
  18. PREDNISONE [Suspect]
     Indication: DIFFUSE LARGE B-CELL LYMPHOMA
     Dosage: 100 MG, QD
     Route: 048
     Dates: start: 20110426, end: 20110430
  19. DOXORUBICIN HCL [Suspect]
     Dosage: 100 MG, UNK
     Route: 042
     Dates: start: 20110628
  20. SULFAMETOXAZOL + TRIMETOPRIMA [Concomitant]
     Indication: PROPHYLAXIS
     Dosage: UNK MG, UNK
     Route: 048
     Dates: start: 20110628
  21. LACTULOSE [Concomitant]
     Indication: CONSTIPATION
     Dosage: 25 ML, UNK
     Route: 048
     Dates: start: 20110101
  22. ENOXAPARIN SODIUM [Concomitant]
     Indication: PAIN
     Dosage: UNK
     Route: 058
     Dates: start: 20110826
  23. MORPHINE SULFATE [Concomitant]
     Indication: PAIN
     Dosage: UNK
     Route: 048
     Dates: start: 20110401
  24. NEUPOGEN [Suspect]
     Indication: DIFFUSE LARGE B-CELL LYMPHOMA
     Dosage: 6 MG, UNK
     Route: 058
     Dates: start: 20110427
  25. RITUXIMAB [Suspect]
     Dosage: 750 MG, UNK
     Route: 042
     Dates: start: 20110503
  26. ELECTROLYTES NOS W/MACROGOL 3350 [Concomitant]
     Indication: CONSTIPATION
     Dosage: UNK
     Dates: start: 20110101

REACTIONS (5)
  - FEBRILE NEUTROPENIA [None]
  - PYREXIA [None]
  - MUSCLE RUPTURE [None]
  - PNEUMONIA [None]
  - PULMONARY EMBOLISM [None]
